FAERS Safety Report 7263306-7 (Version None)
Quarter: 2011Q1

REPORT INFORMATION
  Report Type: 
  Country: None (occurrence: None)
  Receive Date: 20110130
  Receipt Date: 20100924
  Transmission Date: 20110831
  Serious: No
  Sender: FDA-Public Use
  Company Number: US-ABBOTT-10P-163-0673262-00

PATIENT
  Age: 87 Year
  Sex: Female

DRUGS (11)
  1. LOPRESSOR [Concomitant]
     Indication: BLOOD PRESSURE
  2. HYDROCHLOROTHIAZIDE [Concomitant]
     Indication: FLUID RETENTION
     Dosage: 25 MG 1/2 TAB DAILY
  3. HUMIRA [Suspect]
     Indication: PSORIASIS
     Dates: start: 20100909
  4. LIPITOR [Concomitant]
     Indication: BLOOD CHOLESTEROL INCREASED
     Dosage: 40 MG DAILY
  5. DIOVAN [Concomitant]
     Indication: HYPERTENSION
     Dosage: 320 MG DAILY
  6. LYRICA [Concomitant]
     Indication: PAIN
  7. FORTICAL [Concomitant]
     Indication: DYSPNOEA
     Dosage: DAILY
     Route: 055
  8. ADVAIR [Concomitant]
     Indication: DYSPNOEA
     Dosage: 100/50 BID
  9. OS-CAL + D [Concomitant]
     Indication: PRODUCT USED FOR UNKNOWN INDICATION
  10. CELEBREX [Concomitant]
     Indication: PAIN
  11. PRILOSEC [Concomitant]
     Indication: DYSPEPSIA
     Dosage: 20 MG DAILY

REACTIONS (1)
  - INJECTION SITE PAIN [None]
